FAERS Safety Report 9187739 (Version 1)
Quarter: 2013Q1

REPORT INFORMATION
  Report Type: Spontaneous
  Country: AU (occurrence: AU)
  Receive Date: 20130325
  Receipt Date: 20130325
  Transmission Date: 20140127
  Serious: Yes (Other)
  Sender: FDA-Public Use
  Company Number: PHHY2013AU027154

PATIENT
  Age: 73 Year
  Sex: Female

DRUGS (2)
  1. FLECAINIDE [Suspect]
     Indication: ATRIAL FIBRILLATION
     Dosage: 50 MG, BID
  2. OMEPRAZOLE [Concomitant]
     Dosage: 20 MG, BID

REACTIONS (1)
  - Neutropenia [Recovered/Resolved]
